FAERS Safety Report 5663682-2 (Version None)
Quarter: 2008Q1

REPORT INFORMATION
  Report Type: 
  Country: None (occurrence: None)
  Receive Date: 20080310
  Receipt Date: 20080228
  Transmission Date: 20080703
  Serious: Yes (Life-Threatening, Hospitalization)
  Sender: FDA-Public Use
  Company Number: 200803AGG00784

PATIENT
  Age: 79 Year
  Sex: Male

DRUGS (6)
  1. TIROFIBAN (TIROFIBAN HCL) 248 ML [Suspect]
     Indication: ACUTE CORONARY SYNDROME
     Dosage: (248 ML QD INTRAVENOUS (NOT OTHERWISE SPECIFIED))
     Route: 042
     Dates: start: 20080224, end: 20080224
  2. OMEPRAZOLE [Concomitant]
  3. HEPARIN [Concomitant]
  4. NITROGLYCERIN [Concomitant]
  5. OMEGA-3 FATTY ACIDS [Concomitant]
  6. CLOPIDOGREL BISULFATE [Concomitant]

REACTIONS (4)
  - DRUG INEFFECTIVE [None]
  - HAEMOLYSIS [None]
  - LIVER FUNCTION TEST ABNORMAL [None]
  - THROMBOCYTOPENIA [None]
